FAERS Safety Report 12100066 (Version 1)
Quarter: 2016Q1

REPORT INFORMATION
  Report Type: Spontaneous
  Country: US (occurrence: None)
  Receive Date: 20160219
  Receipt Date: 20160219
  Transmission Date: 20160526
  Serious: Yes (Hospitalization)
  Sender: FDA-Public Use
  Company Number: None

PATIENT
  Age: 16 Year
  Sex: Male
  Weight: 56.9 kg

DRUGS (9)
  1. ORKAMBI [Suspect]
     Active Substance: IVACAFTOR\LUMACAFTOR
     Indication: CYSTIC FIBROSIS
     Route: 048
  2. CREON [Concomitant]
     Active Substance: PANCRELIPASE AMYLASE\PANCRELIPASE LIPASE\PANCRELIPASE PROTEASE
  3. GUMMY MULTIVITAMIN [Concomitant]
  4. TOBI PODHALER [Concomitant]
     Active Substance: TOBRAMYCIN
  5. VITAMIN K [Concomitant]
     Active Substance: PHYTONADIONE
  6. ALBUTEROL. [Concomitant]
     Active Substance: ALBUTEROL
  7. AZITHROMYCIN ANHYDROUS. [Concomitant]
     Active Substance: AZITHROMYCIN ANHYDROUS
  8. VENTOLIN HFA [Concomitant]
     Active Substance: ALBUTEROL SULFATE
  9. DORNASE ALFA [Concomitant]
     Active Substance: DORNASE ALFA

REACTIONS (2)
  - Bile duct stone [None]
  - Fatigue [None]

NARRATIVE: CASE EVENT DATE: 20160209
